FAERS Safety Report 4570636-6 (Version None)
Quarter: 2005Q1

REPORT INFORMATION
  Report Type: 
  Country: None (occurrence: None)
  Receive Date: 20050202
  Receipt Date: 20050114
  Transmission Date: 20050727
  Serious: Yes (Hospitalization, Other)
  Sender: FDA-Public Use
  Company Number: US_0501110337

PATIENT
  Age: 25 Year
  Sex: Male

DRUGS (3)
  1. OLAZAPINE                          (OLANZAPINE) [Suspect]
     Indication: BIPOLAR DISORDER
     Dosage: 20 MG/L DAY
     Dates: start: 20040701
  2. CARBAMAZEPINE [Concomitant]
  3. RISPERIDONE [Concomitant]

REACTIONS (4)
  - DEATH OF PARENT [None]
  - IMPRISONMENT [None]
  - MURDER [None]
  - TREATMENT NONCOMPLIANCE [None]
